FAERS Safety Report 4464350-5 (Version None)
Quarter: 2004Q4

REPORT INFORMATION
  Report Type: 
  Country: None (occurrence: None)
  Receive Date: 20041001
  Receipt Date: 20040816
  Transmission Date: 20050328
  Serious: Yes (Disabling)
  Sender: FDA-Public Use
  Company Number: US-MERCK-0408USA01305

PATIENT
  Age: 40 Year
  Sex: Male
  Weight: 71 kg

DRUGS (4)
  1. MEVACOR [Suspect]
     Indication: BLOOD CHOLESTEROL INCREASED
     Route: 048
     Dates: start: 20031229, end: 20040101
  2. MEVACOR [Suspect]
     Route: 048
     Dates: start: 20040101
  3. MEVACOR [Suspect]
     Indication: HYPERLIPIDAEMIA
     Route: 048
     Dates: start: 20031229, end: 20040101
  4. MEVACOR [Suspect]
     Route: 048
     Dates: start: 20040101

REACTIONS (3)
  - SPEECH DISORDER [None]
  - VISUAL DISTURBANCE [None]
  - VITILIGO [None]
